FAERS Safety Report 7912957-2 (Version None)
Quarter: 2011Q4

REPORT INFORMATION
  Report Type: 
  Country: None (occurrence: None)
  Receive Date: 20111114
  Receipt Date: 20111110
  Transmission Date: 20120403
  Serious: Yes (Life-Threatening, Hospitalization)
  Sender: FDA-Public Use
  Company Number: DE-SANOFI-AVENTIS-2011SA073960

PATIENT
  Age: 65 Year
  Sex: Female
  Weight: 80 kg

DRUGS (6)
  1. LEFLUNOMIDE [Suspect]
     Route: 048
     Dates: end: 20110330
  2. ACETYLSALICYLIC ACID SRT [Concomitant]
     Indication: PROPHYLAXIS
     Route: 048
  3. PANTOPRAZOLE [Concomitant]
     Indication: HYPERCHOLESTEROLAEMIA
     Route: 048
  4. PANTOPRAZOLE [Concomitant]
     Route: 048
  5. SIMVASTATIN [Concomitant]
     Indication: HYPERCHOLESTEROLAEMIA
     Route: 048
  6. PREDNISOLONE [Concomitant]
     Route: 048

REACTIONS (1)
  - POSTERIOR REVERSIBLE ENCEPHALOPATHY SYNDROME [None]
